FAERS Safety Report 6631483-4 (Version None)
Quarter: 2010Q1

REPORT INFORMATION
  Report Type: 
  Country: None (occurrence: None)
  Receive Date: 20100312
  Receipt Date: 20100303
  Transmission Date: 20100710
  Serious: Yes (Congenital Anomaly)
  Sender: FDA-Public Use
  Company Number: CH-ASTRAZENECA-2010SE09682

PATIENT
  Sex: Female

DRUGS (3)
  1. OMEPRAZOLE [Suspect]
     Indication: OESOPHAGITIS
     Route: 064
  2. TRAZODONE HCL [Suspect]
     Indication: CONDUCT DISORDER
     Route: 064
  3. STILNOX [Concomitant]
     Indication: MIDDLE INSOMNIA
     Route: 064

REACTIONS (5)
  - DUODENAL ATRESIA [None]
  - GASTROINTESTINAL MALFORMATION [None]
  - HEART DISEASE CONGENITAL [None]
  - MATERNAL DRUGS AFFECTING FOETUS [None]
  - TRISOMY 21 [None]
